FAERS Safety Report 12760561 (Version 1)
Quarter: 2016Q3

REPORT INFORMATION
  Report Type: Report from Study
  Country: DE (occurrence: DE)
  Receive Date: 20160919
  Receipt Date: 20160919
  Transmission Date: 20161109
  Serious: Yes (Hospitalization)
  Sender: FDA-Public Use
  Company Number: US-ASTRAZENECA-2016SE99638

PATIENT
  Sex: Female

DRUGS (20)
  1. SYNAGIS [Suspect]
     Active Substance: PALIVIZUMAB
     Indication: PREMATURE BABY
     Dosage: 109 MG
     Route: 030
     Dates: start: 20091105, end: 20091105
  2. SYNAGIS [Suspect]
     Active Substance: PALIVIZUMAB
     Indication: SUPRAVENTRICULAR TACHYCARDIA
     Dosage: 109 MG
     Route: 030
     Dates: start: 20091105, end: 20091105
  3. SYNAGIS [Suspect]
     Active Substance: PALIVIZUMAB
     Indication: SUPRAVENTRICULAR TACHYCARDIA
     Dosage: 110 MG
     Route: 030
     Dates: start: 20091203, end: 20091203
  4. SYNAGIS [Suspect]
     Active Substance: PALIVIZUMAB
     Indication: BRONCHOPULMONARY DYSPLASIA
     Dosage: 110 MG
     Route: 030
     Dates: start: 20091230, end: 20091230
  5. SYNAGIS [Suspect]
     Active Substance: PALIVIZUMAB
     Indication: PREMATURE BABY
     Dosage: 114 MG
     Route: 030
     Dates: start: 20100127, end: 20100127
  6. SYNAGIS [Suspect]
     Active Substance: PALIVIZUMAB
     Indication: MUSCLE ATROPHY
     Dosage: 114 MG
     Route: 030
     Dates: start: 20100127, end: 20100127
  7. SYNAGIS [Suspect]
     Active Substance: PALIVIZUMAB
     Indication: VOCAL CORD PARESIS
     Dosage: 110 MG
     Route: 030
     Dates: start: 20091203, end: 20091203
  8. SYNAGIS [Suspect]
     Active Substance: PALIVIZUMAB
     Indication: PREMATURE BABY
     Dosage: 110 MG
     Route: 030
     Dates: start: 20091230, end: 20091230
  9. SYNAGIS [Suspect]
     Active Substance: PALIVIZUMAB
     Indication: SUPRAVENTRICULAR TACHYCARDIA
     Dosage: 114 MG
     Route: 030
     Dates: start: 20100127, end: 20100127
  10. SYNAGIS [Suspect]
     Active Substance: PALIVIZUMAB
     Indication: SUPRAVENTRICULAR TACHYCARDIA
     Dosage: 110 MG
     Route: 030
     Dates: start: 20091230, end: 20091230
  11. SYNAGIS [Suspect]
     Active Substance: PALIVIZUMAB
     Indication: VOCAL CORD PARESIS
     Dosage: 114 MG
     Route: 030
     Dates: start: 20100127, end: 20100127
  12. SYNAGIS [Suspect]
     Active Substance: PALIVIZUMAB
     Indication: BRONCHOPULMONARY DYSPLASIA
     Dosage: 109 MG
     Route: 030
     Dates: start: 20091105, end: 20091105
  13. SYNAGIS [Suspect]
     Active Substance: PALIVIZUMAB
     Indication: VOCAL CORD PARESIS
     Dosage: 109 MG
     Route: 030
     Dates: start: 20091105, end: 20091105
  14. SYNAGIS [Suspect]
     Active Substance: PALIVIZUMAB
     Indication: MUSCLE ATROPHY
     Dosage: 109 MG
     Route: 030
     Dates: start: 20091105, end: 20091105
  15. SYNAGIS [Suspect]
     Active Substance: PALIVIZUMAB
     Indication: PREMATURE BABY
     Dosage: 110 MG
     Route: 030
     Dates: start: 20091203, end: 20091203
  16. SYNAGIS [Suspect]
     Active Substance: PALIVIZUMAB
     Indication: MUSCLE ATROPHY
     Dosage: 110 MG
     Route: 030
     Dates: start: 20091203, end: 20091203
  17. SYNAGIS [Suspect]
     Active Substance: PALIVIZUMAB
     Indication: BRONCHOPULMONARY DYSPLASIA
     Dosage: 110 MG
     Route: 030
     Dates: start: 20091203, end: 20091203
  18. SYNAGIS [Suspect]
     Active Substance: PALIVIZUMAB
     Indication: VOCAL CORD PARESIS
     Dosage: 110 MG
     Route: 030
     Dates: start: 20091230, end: 20091230
  19. SYNAGIS [Suspect]
     Active Substance: PALIVIZUMAB
     Indication: BRONCHOPULMONARY DYSPLASIA
     Dosage: 114 MG
     Route: 030
     Dates: start: 20100127, end: 20100127
  20. SYNAGIS [Suspect]
     Active Substance: PALIVIZUMAB
     Indication: MUSCLE ATROPHY
     Dosage: 110 MG
     Route: 030
     Dates: start: 20091230, end: 20091230

REACTIONS (1)
  - Bronchitis [Recovered/Resolved]

NARRATIVE: CASE EVENT DATE: 20100213
